FAERS Safety Report 8451062-6 (Version None)
Quarter: 2012Q2

REPORT INFORMATION
  Report Type: 
  Country: None (occurrence: None)
  Receive Date: 20120613
  Receipt Date: 20120601
  Transmission Date: 20120825
  Serious: Yes (Disabling)
  Sender: FDA-Public Use
  Company Number: 2012SP030176

PATIENT
  Age: 61 Year
  Sex: Male

DRUGS (4)
  1. RIBAVIRIN [Suspect]
     Indication: HEPATITIS C
     Dosage: BID
     Dates: start: 20120501
  2. VITAMINS E [Concomitant]
  3. VITAMINS C [Concomitant]
  4. PEG-INTRON [Suspect]
     Indication: HEPATITIS C
     Dosage: QW
     Dates: start: 20120501

REACTIONS (5)
  - HAEMOGLOBIN INCREASED [None]
  - PAIN [None]
  - IMPAIRED WORK ABILITY [None]
  - GASTROINTESTINAL MOTILITY DISORDER [None]
  - EMOTIONAL DISORDER [None]
